FAERS Safety Report 21067576 (Version 1)
Quarter: 2022Q3

REPORT INFORMATION
  Report Type: Spontaneous
  Country: DE (occurrence: DE)
  Receive Date: 20220712
  Receipt Date: 20220712
  Transmission Date: 20221026
  Serious: Yes (Death, Life-Threatening, Hospitalization, Other)
  Sender: FDA-Public Use
  Company Number: DE-BoehringerIngelheim-2022-BI-171262

PATIENT
  Age: 65 Year
  Sex: Male
  Weight: 76 kg

DRUGS (15)
  1. METFORMIN [Suspect]
     Active Substance: METFORMIN HYDROCHLORIDE
     Indication: Diabetes mellitus
     Dosage: UNK
     Route: 065
     Dates: end: 20220417
  2. JARDIANCE [Suspect]
     Active Substance: EMPAGLIFLOZIN
     Indication: Diabetes mellitus
     Dosage: 25 MILLIGRAM, ONCE A DAY
     Route: 065
     Dates: end: 20220417
  3. LYRICA [Concomitant]
     Active Substance: PREGABALIN
     Indication: Pain
     Dosage: 75 MILLIGRAM, 3 TIMES A DAY
     Route: 065
     Dates: end: 20220423
  4. PANTOPRAZOLE [Concomitant]
     Active Substance: PANTOPRAZOLE
     Indication: Gastrooesophageal reflux disease
     Dosage: 400 MILLIGRAM, ONCE A DAY
     Route: 065
     Dates: end: 20220423
  5. HYDROCORTISONE [Concomitant]
     Active Substance: HYDROCORTISONE
     Indication: Post procedural complication
     Dosage: 10 MILLIGRAM, ONCE A DAY
     Route: 065
     Dates: end: 20220423
  6. RAMIPRIL [Concomitant]
     Active Substance: RAMIPRIL
     Indication: Hypertension
     Dosage: 5 MILLIGRAM, ONCE A DAY
     Route: 065
     Dates: end: 20220423
  7. AMLODIPINE [Concomitant]
     Active Substance: AMLODIPINE BESYLATE
     Indication: Hypertension
     Dosage: 5 MILLIGRAM, ONCE A DAY
     Route: 065
     Dates: end: 20220420
  8. CRESTOR [Concomitant]
     Active Substance: ROSUVASTATIN CALCIUM
     Indication: Arteriosclerosis
     Dosage: UNK
     Route: 065
     Dates: end: 20220417
  9. FLUDROCORTISONE [Concomitant]
     Active Substance: FLUDROCORTISONE
     Indication: Adrenal insufficiency
     Dosage: 0.1 MILLIGRAM, ONCE A DAY
     Route: 065
     Dates: end: 20220421
  10. BISOPROLOL [Concomitant]
     Active Substance: BISOPROLOL
     Indication: Hypertension
     Dosage: 5 MILLIGRAM, ONCE A DAY
     Route: 065
     Dates: end: 20220417
  11. ASPIRIN [Concomitant]
     Active Substance: ASPIRIN
     Indication: Arteriosclerosis
     Dosage: 100 MILLIGRAM, ONCE A DAY
     Route: 065
     Dates: end: 20220423
  12. MINIRIN [Concomitant]
     Active Substance: DESMOPRESSIN ACETATE
     Indication: Adrenal insufficiency
     Dosage: 0.2 MILLIGRAM, ONCE A DAY
     Route: 065
     Dates: end: 20220422
  13. OLODATEROL HYDROCHLORIDE\TIOTROPIUM BROMIDE MONOHYDRATE [Concomitant]
     Active Substance: OLODATEROL HYDROCHLORIDE\TIOTROPIUM BROMIDE MONOHYDRATE
     Indication: Chronic obstructive pulmonary disease
     Dosage: SPIOLTO RESPIMAT 1X2.5 MICROGRAMM/2.5 MICROGRAMM
     Route: 065
     Dates: end: 20220423
  14. GASTROZEPIN [Concomitant]
     Active Substance: PIRENZEPINE HYDROCHLORIDE
     Indication: Gastrooesophageal reflux disease
     Dosage: 50 MILLIGRAM, ONCE A DAY
     Route: 065
     Dates: end: 20220423
  15. EUTHYROX [Concomitant]
     Active Substance: LEVOTHYROXINE SODIUM
     Indication: Hypothyroidism
     Dosage: 50 MICROGRAM, ONCE A DAY
     Route: 065
     Dates: end: 20220423

REACTIONS (9)
  - Death [Fatal]
  - Ketoacidosis [Unknown]
  - Hyponatraemia [Unknown]
  - Fluid intake reduced [Unknown]
  - Altered state of consciousness [Unknown]
  - Disturbance in attention [Unknown]
  - Syncope [Unknown]
  - Hypophagia [Unknown]
  - Injury [Unknown]

NARRATIVE: CASE EVENT DATE: 20220419
